FAERS Safety Report 19952011 (Version 1)
Quarter: 2021Q4

REPORT INFORMATION
  Report Type: Spontaneous
  Country: DE (occurrence: DE)
  Receive Date: 20211013
  Receipt Date: 20211013
  Transmission Date: 20220303
  Serious: Yes (Hospitalization)
  Sender: FDA-Public Use
  Company Number: DE-ADRED-06535-01

PATIENT
  Age: 83 Year
  Sex: Female

DRUGS (13)
  1. CLARITHROMYCIN [Suspect]
     Active Substance: CLARITHROMYCIN
     Indication: Product used for unknown indication
     Dosage: UNK (250 MG, FRUH UND ABEND BIS SIEBTEN APRIL, TABLETTEN)
     Route: 048
  2. BENSERAZIDE\LEVODOPA [Suspect]
     Active Substance: BENSERAZIDE\LEVODOPA
     Indication: Product used for unknown indication
     Dosage: 1 DOSAGE FORM, TID (100/25 MG, 1-1-1-0, TABLETTEN)
     Route: 048
  3. MIRTAZAPINE [Suspect]
     Active Substance: MIRTAZAPINE
     Indication: Product used for unknown indication
     Dosage: 30 MILLIGRAM, QD (30 MG, 0-0-1-0, TABLETTEN)
     Route: 048
  4. LITHIUM CARBONATE [Suspect]
     Active Substance: LITHIUM CARBONATE
     Indication: Product used for unknown indication
     Dosage: UNK (0.5-0-1-0, RETARD-TABLETTEN)
     Route: 048
  5. CITALOPRAM [Suspect]
     Active Substance: CITALOPRAM HYDROBROMIDE
     Indication: Product used for unknown indication
     Dosage: 30 MILLIGRAM, QD (30 MG, 1-0-0-0, TABLETTEN)
     Route: 048
  6. MELPERONE [Suspect]
     Active Substance: MELPERONE
     Indication: Product used for unknown indication
     Dosage: 25 MILLIGRAM, QD (25 MG, 0-0-1-0, TABLETTEN)
     Route: 048
  7. ZOLPIDEM [Concomitant]
     Active Substance: ZOLPIDEM TARTRATE
     Dosage: UNK (10 MG, BEI BEDARF, TABLETTEN)
     Route: 048
  8. PROPIVERINE [Concomitant]
     Active Substance: PROPIVERINE
     Dosage: 15 MILLIGRAM, BID (15 MG, 1-0-1-0, TABLETTEN)
     Route: 048
  9. NYSTATIN W/ZINC OXIDE [Concomitant]
     Dosage: UNK (BEI BEDARF, SALBE)
     Route: 003
  10. LEVOTHYROXINE SODIUM [Concomitant]
     Active Substance: LEVOTHYROXINE SODIUM
     Dosage: 75 MICROGRAM, QD (75 ?G, 1-0-0-0, TABLETTEN)
     Route: 048
  11. ACETAMINOPHEN [Concomitant]
     Active Substance: ACETAMINOPHEN
     Dosage: UNK (500 MG, 4 MAL TAGLICH BIS SIEBTEN APRIL, TABLETTEN)
     Route: 048
  12. FUROSEMIDE [Concomitant]
     Active Substance: FUROSEMIDE
     Dosage: UNK (BEI BEDARF, TABLETTEN)
     Route: 048
  13. SIMVASTATIN [Concomitant]
     Active Substance: SIMVASTATIN
     Dosage: 10 MILLIGRAM, QD (10 MG, 0-0-1-0, TABLETTEN)
     Route: 048

REACTIONS (4)
  - Fall [Unknown]
  - Asthenia [Unknown]
  - Dizziness [Unknown]
  - Medication error [Unknown]
